FAERS Safety Report 15226695 (Version 2)
Quarter: 2018Q3

REPORT INFORMATION
  Report Type: Report from Study
  Country: CA (occurrence: CA)
  Receive Date: 20180801
  Receipt Date: 20180820
  Transmission Date: 20181010
  Serious: Yes (Hospitalization, Other)
  Sender: FDA-Public Use
  Company Number: PHHY2017CA157044

PATIENT
  Age: 82 Year
  Sex: Male
  Weight: 69 kg

DRUGS (10)
  1. ENTRESTO [Suspect]
     Active Substance: SACUBITRIL\VALSARTAN
     Dosage: 1 DF (24/26MG), UNK
     Route: 048
     Dates: start: 20171031, end: 20171121
  2. ENTRESTO [Suspect]
     Active Substance: SACUBITRIL\VALSARTAN
     Dosage: 1 DF (49/51MG), UNK
     Route: 048
     Dates: start: 20171031, end: 20171121
  3. ENTRESTO [Suspect]
     Active Substance: SACUBITRIL\VALSARTAN
     Dosage: 2 DF (24/26MG), UNK
     Route: 048
     Dates: start: 20171006, end: 20171031
  4. ENTRESTO [Suspect]
     Active Substance: SACUBITRIL\VALSARTAN
     Indication: CARDIAC FAILURE
     Dosage: 2 DF (24/26 MG), UNK
     Route: 048
     Dates: start: 20170717, end: 20170802
  5. ENTRESTO [Suspect]
     Active Substance: SACUBITRIL\VALSARTAN
     Dosage: 1 DF (24/26MG), UNK
     Route: 048
     Dates: start: 20170802, end: 20171003
  6. ENTRESTO [Suspect]
     Active Substance: SACUBITRIL\VALSARTAN
     Dosage: 1 DF (49/51MG), UNK
     Route: 048
     Dates: start: 20170906, end: 20171003
  7. RAMIPRIL. [Concomitant]
     Active Substance: RAMIPRIL
     Indication: PRODUCT USED FOR UNKNOWN INDICATION
     Dosage: 5 MG, UNK
     Route: 048
     Dates: start: 20171213
  8. ENTRESTO [Suspect]
     Active Substance: SACUBITRIL\VALSARTAN
     Dosage: 2 DF (24/26MG), UNK
     Route: 048
     Dates: start: 20171121, end: 20171213
  9. FUROSEMIDE. [Concomitant]
     Active Substance: FUROSEMIDE
     Indication: PRODUCT USED FOR UNKNOWN INDICATION
     Dosage: 60 MG, UNK
     Route: 048
     Dates: start: 20171121
  10. METOPROLOL. [Concomitant]
     Active Substance: METOPROLOL
     Indication: PRODUCT USED FOR UNKNOWN INDICATION
     Dosage: 100 MG, UNK
     Route: 048

REACTIONS (10)
  - Dyspnoea [Recovered/Resolved]
  - Hypotension [Not Recovered/Not Resolved]
  - Blood urea increased [Not Recovered/Not Resolved]
  - Blood bilirubin increased [Unknown]
  - Hypokalaemia [Not Recovered/Not Resolved]
  - Cardiac failure [Not Recovered/Not Resolved]
  - Gamma-glutamyltransferase increased [Not Recovered/Not Resolved]
  - Blood creatinine increased [Recovered/Resolved]
  - Peripheral swelling [Not Recovered/Not Resolved]
  - Pyrexia [Unknown]

NARRATIVE: CASE EVENT DATE: 20170921
